FAERS Safety Report 19618390 (Version 1)
Quarter: 2021Q3

REPORT INFORMATION
  Report Type: Spontaneous
  Country: US (occurrence: US)
  Receive Date: 20210727
  Receipt Date: 20210727
  Transmission Date: 20211014
  Serious: Yes (Other)
  Sender: FDA-Public Use
  Company Number: US-ROCHE-2781757

PATIENT
  Sex: Female

DRUGS (2)
  1. CAPECITABINE. [Suspect]
     Active Substance: CAPECITABINE
     Indication: PRODUCT USED FOR UNKNOWN INDICATION
     Route: 065
  2. TUKYSA [Suspect]
     Active Substance: TUCATINIB
     Indication: BREAST CANCER FEMALE
     Route: 065

REACTIONS (9)
  - Headache [Unknown]
  - Pain [Unknown]
  - Palmar-plantar erythrodysaesthesia syndrome [Unknown]
  - Fatigue [Unknown]
  - Abdominal pain [Unknown]
  - Nail bed disorder [Unknown]
  - Nausea [Unknown]
  - Diarrhoea [Recovering/Resolving]
  - Hepatic function abnormal [Unknown]
